FAERS Safety Report 16560559 (Version 3)
Quarter: 2019Q3

REPORT INFORMATION
  Report Type: Report from Study
  Country: FR (occurrence: FR)
  Receive Date: 20190711
  Receipt Date: 20190726
  Transmission Date: 20191004
  Serious: Yes (Hospitalization, Other)
  Sender: FDA-Public Use
  Company Number: FR-ROCHE-2317495

PATIENT
  Age: 68 Year
  Sex: Male
  Weight: 84 kg

DRUGS (3)
  1. ATEZOLIZUMAB. [Suspect]
     Active Substance: ATEZOLIZUMAB
     Indication: BLADDER CANCER
     Route: 042
     Dates: start: 20190418
  2. BCG VACCINE [Suspect]
     Active Substance: BCG VACCINE
     Indication: BLADDER CANCER
     Dosage: 100 UNITS?ON 26/APR/2019, RECEIVED LAST DOSE OF BACILLUS CALMETTE-GUERIN (BCG) VACCINE
     Route: 048
     Dates: start: 20190417
  3. LIPANTHYL [Concomitant]
     Active Substance: FENOFIBRATE
     Indication: HYPERTRIGLYCERIDAEMIA
     Route: 048
     Dates: start: 2005

REACTIONS (6)
  - Dysphagia [Recovered/Resolved]
  - Pyrexia [Recovered/Resolved]
  - Disseminated Bacillus Calmette-Guerin infection [Recovered/Resolved]
  - Odynophagia [Recovered/Resolved]
  - Pain [Recovered/Resolved]
  - Infected neoplasm [Unknown]

NARRATIVE: CASE EVENT DATE: 20190503
